FAERS Safety Report 8839969 (Version 1)
Quarter: 2012Q4

REPORT INFORMATION
  Report Type: Spontaneous
  Country: US (occurrence: None)
  Receive Date: 20121011
  Receipt Date: 20121011
  Transmission Date: 20130627
  Serious: No
  Sender: FDA-Public Use
  Company Number: 2012-511

PATIENT

DRUGS (10)
  1. FAZACLO [Suspect]
     Indication: SCHIZOPHRENIA
     Dosage: 25-375 mg, qd, Oral
     Route: 048
     Dates: start: 20081212, end: 20120913
  2. GLIMEPIRIDE (GLIMEPIRIDE) [Concomitant]
  3. RISPERDAL (RISPERIDONE) [Concomitant]
  4. NUVIGIL (ARMODAFINIL) [Concomitant]
  5. ACTOS (PIOGLITAZONE HYDROCHLORIDE) [Concomitant]
  6. NEXIUM (ESOMEPRAZOLE MAGNESIUM) [Concomitant]
  7. ASPIRIN (ACETYLSALICYLIC ACID) [Concomitant]
  8. BUPROPION (BUPROPION HYDROCHLORIDE) [Concomitant]
  9. BENZTROPINE MESILATE (BENZATROPINE MESILATE) [Concomitant]
  10. DOCUSATE SODIUM (DOCUSATE SODIUM) [Concomitant]

REACTIONS (31)
  - Cardiac death [None]
  - Suicide attempt [None]
  - Road traffic accident [None]
  - Chemical burn of gastrointestinal tract [None]
  - Chemical burn of skin [None]
  - Chemical burn of respiratory tract [None]
  - Chemical burns of eye [None]
  - Sinus tachycardia [None]
  - Shock [None]
  - Haematochezia [None]
  - Hypocalcaemia [None]
  - Renal failure acute [None]
  - Haemorrhagic anaemia [None]
  - Lactic acidosis [None]
  - Pleural effusion [None]
  - Respiratory arrest [None]
  - Hypotension [None]
  - Pneumonia aspiration [None]
  - Liver function test abnormal [None]
  - Hyperglycaemia [None]
  - Thrombocytopenia [None]
  - Leukocytosis [None]
  - Tachycardia [None]
  - Unresponsive to stimuli [None]
  - Hiccups [None]
  - Dyspnoea [None]
  - Pneumonia aspiration [None]
  - Renal failure acute [None]
  - Anaemia [None]
  - Liver function test abnormal [None]
  - Hyporeflexia [None]
